FAERS Safety Report 11165099 (Version 1)
Quarter: 2015Q2

REPORT INFORMATION
  Report Type: Spontaneous
  Country: US (occurrence: US)
  Receive Date: 20150604
  Receipt Date: 20150604
  Transmission Date: 20150821
  Serious: Yes (Death)
  Sender: FDA-Public Use
  Company Number: US-PFIZER INC-2015186739

PATIENT
  Age: 65 Year
  Sex: Female
  Weight: 51 kg

DRUGS (1)
  1. XALKORI [Suspect]
     Active Substance: CRIZOTINIB
     Indication: SARCOMA
     Dosage: 250 MG, 2X/DAY
     Dates: start: 201502

REACTIONS (3)
  - Product use issue [Unknown]
  - Disease progression [Fatal]
  - Sarcoma [Fatal]
